FAERS Safety Report 16603147 (Version 8)
Quarter: 2020Q2

REPORT INFORMATION
  Report Type: Report from Study
  Country: TW (occurrence: TW)
  Receive Date: 20190721
  Receipt Date: 20200522
  Transmission Date: 20200713
  Serious: Yes (Death)
  Sender: FDA-Public Use
  Company Number: PHHO2019TW007455

PATIENT
  Age: 59 Year
  Sex: Male
  Weight: 58 kg

DRUGS (26)
  1. CANAKINUMAB. [Suspect]
     Active Substance: CANAKINUMAB
     Indication: NON-SMALL CELL LUNG CANCER
     Dosage: UNK
     Route: 058
     Dates: start: 20190711
  2. BISACODYL. [Concomitant]
     Active Substance: BISACODYL
     Indication: CONSTIPATION
     Dosage: UNK
     Route: 065
     Dates: start: 20190705, end: 20190705
  3. FAMOTIDINE. [Concomitant]
     Active Substance: FAMOTIDINE
     Indication: GASTRIC ULCER
     Dosage: UNK
     Route: 065
     Dates: start: 20190531, end: 20190709
  4. BRICANYL [Concomitant]
     Active Substance: TERBUTALINE SULFATE
     Indication: PLEURAL EFFUSION
  5. COMPARATOR PEMBROLIZUMAB [Suspect]
     Active Substance: PEMBROLIZUMAB
     Indication: NON-SMALL CELL LUNG CANCER
     Dosage: 200 MG, Q3W
     Route: 042
     Dates: start: 20190711
  6. ALBUTEIN [Concomitant]
     Active Substance: ALBUMIN HUMAN
     Indication: HYPOALBUMINAEMIA
     Dosage: UNK
     Route: 065
     Dates: start: 20190709, end: 20190711
  7. PANAGESIC [Concomitant]
     Indication: GASTRIC ULCER
     Dosage: UNK
     Route: 065
     Dates: start: 20190626, end: 20190709
  8. SENNAPUR [Concomitant]
     Dosage: UNK
     Route: 065
     Dates: start: 20190630, end: 20190704
  9. BRICANYL [Concomitant]
     Active Substance: TERBUTALINE SULFATE
     Indication: DYSPNOEA
     Dosage: UNK
     Route: 065
     Dates: start: 20190629, end: 20190629
  10. MEDROXYPROGESTERONE [Concomitant]
     Active Substance: MEDROXYPROGESTERONE
     Indication: NON-SMALL CELL LUNG CANCER
     Dosage: UNK
     Route: 065
     Dates: start: 20190617, end: 20190712
  11. PRIMPERAN [Concomitant]
     Active Substance: METOCLOPRAMIDE HYDROCHLORIDE
     Indication: PROPHYLAXIS
     Dosage: UNK
     Route: 065
     Dates: start: 20190711, end: 20190711
  12. DIPHENHYDRAMINE. [Concomitant]
     Active Substance: DIPHENHYDRAMINE
     Indication: PROPHYLAXIS
     Dosage: UNK
     Route: 065
     Dates: start: 20190629, end: 20190629
  13. DIPHENHYDRAMINE. [Concomitant]
     Active Substance: DIPHENHYDRAMINE
     Dosage: UNK
     Route: 065
     Dates: start: 20190711, end: 20190711
  14. PIPERACILLIN. [Concomitant]
     Active Substance: PIPERACILLIN SODIUM
     Indication: PROPHYLAXIS
     Dosage: UNK
     Route: 065
     Dates: start: 20190629, end: 20190709
  15. DEXAMETHASONE. [Concomitant]
     Active Substance: DEXAMETHASONE
     Indication: PROPHYLAXIS
     Dosage: UNK
     Route: 065
     Dates: start: 20190711, end: 20190711
  16. FAMOTIDINE. [Concomitant]
     Active Substance: FAMOTIDINE
     Dosage: UNK
     Route: 065
     Dates: start: 20190617, end: 20190709
  17. SENNAPUR [Concomitant]
     Indication: CONSTIPATION
     Dosage: UNK
     Route: 065
     Dates: start: 20190617, end: 20190626
  18. ALOXI [Concomitant]
     Active Substance: PALONOSETRON HYDROCHLORIDE
     Indication: PROPHYLAXIS
     Dosage: UNK
     Route: 065
     Dates: start: 20190711, end: 20190711
  19. OXETHAZAINE [Concomitant]
     Active Substance: OXETHAZAINE
     Indication: GASTRIC ULCER
     Dosage: UNK
     Route: 065
     Dates: start: 20190712
  20. COMPARATOR CARBOPLATIN [Suspect]
     Active Substance: CARBOPLATIN
     Indication: NON-SMALL CELL LUNG CANCER
     Dosage: 533 MG, Q3W
     Route: 042
     Dates: start: 20190711
  21. SENNAPUR [Concomitant]
     Dosage: UNK
     Route: 065
     Dates: start: 20190707
  22. COMPARATOR PEMETREXED [Suspect]
     Active Substance: PEMETREXED DISODIUM
     Indication: NON-SMALL CELL LUNG CANCER
     Dosage: 820 MG, Q3W
     Route: 042
     Dates: start: 20190711
  23. PROMERAN [Concomitant]
     Indication: GASTRIC ULCER
     Dosage: UNK
     Route: 065
     Dates: start: 20190712
  24. TRAMADOL. [Concomitant]
     Active Substance: TRAMADOL
     Indication: CHEST PAIN
     Dosage: UNK
     Route: 065
     Dates: start: 20190612, end: 20190626
  25. TRAMADOL. [Concomitant]
     Active Substance: TRAMADOL
     Dosage: UNK
     Route: 065
     Dates: start: 20190630
  26. POLYMIGEL [Concomitant]
     Indication: GASTRIC ULCER
     Dosage: UNK
     Route: 065
     Dates: start: 20190712

REACTIONS (1)
  - Sudden death [Fatal]

NARRATIVE: CASE EVENT DATE: 20190716
